FAERS Safety Report 5972046-3 (Version None)
Quarter: 2008Q4

REPORT INFORMATION
  Report Type: 
  Country: None (occurrence: None)
  Receive Date: 20081201
  Receipt Date: 20080215
  Transmission Date: 20090506
  Serious: No
  Sender: FDA-Public Use
  Company Number: US-TEVA-167656USA

PATIENT
  Sex: Male

DRUGS (3)
  1. SALBUTAMOL SULFATE INHALATION, 0.09 MG [Suspect]
     Indication: ASTHMA
     Dosage: 2 PUFFS PRN
     Route: 055
     Dates: start: 20080212, end: 20080212
  2. CETIRIZINE HYDROCHLORIDE [Concomitant]
  3. FLUTICASONE PROPIONATE [Concomitant]

REACTIONS (1)
  - URTICARIA [None]
